FAERS Safety Report 4853187-0 (Version None)
Quarter: 2005Q4

REPORT INFORMATION
  Report Type: 
  Country: None (occurrence: None)
  Receive Date: 20051214
  Receipt Date: 20051202
  Transmission Date: 20060501
  Serious: Yes (Other)
  Sender: FDA-Public Use
  Company Number: BR-ROCHE-427504

PATIENT
  Age: 19 Year
  Sex: Male
  Weight: 60 kg

DRUGS (1)
  1. ROACUTAN [Suspect]
     Indication: ACNE
     Route: 048
     Dates: start: 20050901, end: 20051115

REACTIONS (1)
  - INFECTIOUS MONONUCLEOSIS [None]
